FAERS Safety Report 15698878 (Version 1)
Quarter: 2018Q4

REPORT INFORMATION
  Report Type: Spontaneous
  Country: US (occurrence: US)
  Receive Date: 20181207
  Receipt Date: 20181207
  Transmission Date: 20190205
  Serious: Yes (Hospitalization)
  Sender: FDA-Public Use
  Company Number: None

PATIENT
  Age: 76 Year
  Sex: Female

DRUGS (1)
  1. CAPECITABINE. [Suspect]
     Active Substance: CAPECITABINE
     Indication: HEPATIC CANCER
     Dosage: ?          OTHER FREQUENCY:BID X14 DYS 7 OFF;?
     Route: 048

REACTIONS (1)
  - Sepsis [None]

NARRATIVE: CASE EVENT DATE: 20181015
